FAERS Safety Report 18702172 (Version 1)
Quarter: 2021Q1

REPORT INFORMATION
  Report Type: Spontaneous
  Country: US (occurrence: US)
  Receive Date: 20210105
  Receipt Date: 20210105
  Transmission Date: 20210419
  Serious: Yes (Hospitalization)
  Sender: FDA-Public Use
  Company Number: US-STRIDES ARCOLAB LIMITED-2020SP016705

PATIENT
  Age: 71 Year
  Sex: Male

DRUGS (6)
  1. ENOXAPARIN [ENOXAPARIN SODIUM] [Suspect]
     Active Substance: ENOXAPARIN SODIUM
     Indication: THROMBOSIS PROPHYLAXIS
     Dosage: UNK
     Route: 065
  2. ONCOVIN [Suspect]
     Active Substance: VINCRISTINE SULFATE
     Indication: DIFFUSE LARGE B-CELL LYMPHOMA
     Dosage: UNK (R?EPOCH REGIMEN WITHOUT RITUXIMAB)
     Route: 065
  3. DOXORUBICIN [Suspect]
     Active Substance: DOXORUBICIN
     Indication: DIFFUSE LARGE B-CELL LYMPHOMA
     Dosage: UNK (R?EPOCH REGIMEN WITHOUT RITUXIMAB)
     Route: 065
  4. ETOPOSIDE. [Suspect]
     Active Substance: ETOPOSIDE
     Indication: DIFFUSE LARGE B-CELL LYMPHOMA
     Dosage: UNK (R?EPOCH REGIMEN WITHOUT RITUXIMAB)
     Route: 065
  5. CYCLOPHOSPHAMIDE. [Suspect]
     Active Substance: CYCLOPHOSPHAMIDE
     Indication: DIFFUSE LARGE B-CELL LYMPHOMA
     Dosage: UNK (R?EPOCH REGIMEN WITHOUT RITUXIMAB)
     Route: 065
  6. PREDNISOLONE. [Suspect]
     Active Substance: PREDNISOLONE
     Indication: DIFFUSE LARGE B-CELL LYMPHOMA
     Dosage: UNK (R?EPOCH REGIMEN WITHOUT RITUXIMAB)
     Route: 065

REACTIONS (4)
  - Chronic gastritis [Unknown]
  - Gastric polyps [Unknown]
  - Shock haemorrhagic [Unknown]
  - Gastrointestinal haemorrhage [Recovered/Resolved]
